FAERS Safety Report 6465478-0 (Version None)
Quarter: 2009Q4

REPORT INFORMATION
  Report Type: 
  Country: None (occurrence: None)
  Receive Date: 20091124
  Receipt Date: 20091118
  Transmission Date: 20100525
  Serious: Yes (Life-Threatening, Hospitalization)
  Sender: FDA-Public Use
  Company Number: 2009SP025268

PATIENT
  Age: 4 Year
  Sex: Male
  Weight: 14 kg

DRUGS (13)
  1. ROCURONIUM BROMIDE [Suspect]
     Indication: NEUROMUSCULAR BLOCKING THERAPY
     Dosage: 15 MG; ; IV, 5 MG; ; IV, 10 MG; ; IV, 30 MG; ; IV, 0.6 MG; QH; INDRP
     Dates: start: 20090317, end: 20090317
  2. ROCURONIUM BROMIDE [Suspect]
     Indication: NEUROMUSCULAR BLOCKING THERAPY
     Dosage: 15 MG; ; IV, 5 MG; ; IV, 10 MG; ; IV, 30 MG; ; IV, 0.6 MG; QH; INDRP
     Dates: start: 20090318, end: 20090318
  3. ROCURONIUM BROMIDE [Suspect]
     Indication: NEUROMUSCULAR BLOCKING THERAPY
     Dosage: 15 MG; ; IV, 5 MG; ; IV, 10 MG; ; IV, 30 MG; ; IV, 0.6 MG; QH; INDRP
     Dates: start: 20090319, end: 20090319
  4. ROCURONIUM BROMIDE [Suspect]
     Indication: NEUROMUSCULAR BLOCKING THERAPY
     Dosage: 15 MG; ; IV, 5 MG; ; IV, 10 MG; ; IV, 30 MG; ; IV, 0.6 MG; QH; INDRP
     Dates: start: 20090318, end: 20090320
  5. ROCURONIUM BROMIDE [Suspect]
     Indication: NEUROMUSCULAR BLOCKING THERAPY
     Dosage: 15 MG; ; IV, 5 MG; ; IV, 10 MG; ; IV, 30 MG; ; IV, 0.6 MG; QH; INDRP
     Dates: start: 20090320, end: 20090320
  6. HYDROCORTISONE [Suspect]
     Indication: GENERAL ANAESTHESIA
     Dosage: ; INH
     Route: 055
     Dates: start: 20090317, end: 20090318
  7. KETAMINE HCL [Suspect]
     Indication: GENERAL ANAESTHESIA
     Dosage: 5 MG; ; IV
     Route: 042
     Dates: start: 20090317, end: 20090317
  8. PROPOFOL [Suspect]
     Indication: GENERAL ANAESTHESIA
     Dosage: 100 ML; ; IV
     Route: 042
     Dates: start: 20090317, end: 20090317
  9. FAMOTIDINE [Suspect]
     Dosage: 20 MG; ; IV
     Route: 042
     Dates: start: 20090318, end: 20090321
  10. DORMICUM [Concomitant]
  11. FENTANYL [Concomitant]
  12. CALCICOL [Concomitant]
  13. LASIX [Concomitant]

REACTIONS (12)
  - ALANINE AMINOTRANSFERASE INCREASED [None]
  - ASPARTATE AMINOTRANSFERASE INCREASED [None]
  - BLOOD LACTATE DEHYDROGENASE INCREASED [None]
  - HAEMATURIA [None]
  - HAEMODYNAMIC INSTABILITY [None]
  - HAEMOLYSIS [None]
  - HYPERTHERMIA MALIGNANT [None]
  - PERITONEAL DIALYSIS [None]
  - RHABDOMYOLYSIS [None]
  - RIGHT VENTRICULAR FAILURE [None]
  - VITAL FUNCTIONS ABNORMAL [None]
  - WEANING FAILURE [None]
